FAERS Safety Report 7691434-0 (Version None)
Quarter: 2011Q3

REPORT INFORMATION
  Report Type: 
  Country: None (occurrence: None)
  Receive Date: 20110818
  Receipt Date: 20110809
  Transmission Date: 20111222
  Serious: Yes (Life-Threatening)
  Sender: FDA-Public Use
  Company Number: PH-BAXTER-2011BH026423

PATIENT
  Age: 1 Year
  Sex: Male

DRUGS (1)
  1. HEMOFIL M [Suspect]
     Indication: FACTOR VIII DEFICIENCY
     Route: 042
     Dates: start: 20110726, end: 20110726

REACTIONS (1)
  - CYANOSIS [None]
